FAERS Safety Report 9015934 (Version 2)
Quarter: 2013Q1

REPORT INFORMATION
  Report Type: Spontaneous
  Country: US (occurrence: US)
  Receive Date: 20130116
  Receipt Date: 20130123
  Transmission Date: 20140127
  Serious: Yes (Other)
  Sender: FDA-Public Use
  Company Number: US-ASTRAZENECA-2013SE02259

PATIENT
  Sex: Male

DRUGS (2)
  1. ATACAND [Suspect]
     Route: 048
  2. UNKNOWN [Concomitant]

REACTIONS (2)
  - Atrial fibrillation [Unknown]
  - Hypertension [Unknown]
